FAERS Safety Report 7694378-3 (Version None)
Quarter: 2011Q3

REPORT INFORMATION
  Report Type: 
  Country: None (occurrence: None)
  Receive Date: 20110819
  Receipt Date: 20110808
  Transmission Date: 20111222
  Serious: Yes (Other)
  Sender: FDA-Public Use
  Company Number: JP-MERCK-1108USA01342

PATIENT
  Age: 38 Year
  Sex: Female

DRUGS (8)
  1. JUVELA [Concomitant]
     Route: 065
  2. CINAL [Concomitant]
     Route: 065
  3. CAMOSTATE [Concomitant]
     Route: 065
  4. NEUQUINON [Concomitant]
     Route: 065
  5. GARENOXACIN MESYLATE [Concomitant]
     Route: 065
  6. PANCREAZE [Concomitant]
     Route: 065
  7. TALION [Concomitant]
     Route: 065
  8. PEPCID RPD [Suspect]
     Route: 048
     Dates: start: 20110620, end: 20110625

REACTIONS (2)
  - MENSTRUATION IRREGULAR [None]
  - ABDOMINAL PAIN UPPER [None]
